FAERS Safety Report 8605156-2 (Version None)
Quarter: 2012Q3

REPORT INFORMATION
  Report Type: 
  Country: None (occurrence: None)
  Receive Date: 20120820
  Receipt Date: 20120815
  Transmission Date: 20120928
  Serious: Yes (Hospitalization)
  Sender: FDA-Public Use
  Company Number: NL-PFIZER INC-2012170081

PATIENT
  Age: 52 Year
  Sex: Male

DRUGS (2)
  1. COZAAR [Concomitant]
     Dosage: 100 MG ONE TIME DAILY
     Route: 048
  2. ATORVASTATIN CALCIUM [Suspect]
     Dosage: 10 MG, UNK
     Route: 048

REACTIONS (2)
  - DYSPNOEA [None]
  - HALLUCINATION [None]
